FAERS Safety Report 4704036-2 (Version None)
Quarter: 2005Q2

REPORT INFORMATION
  Report Type: 
  Country: None (occurrence: None)
  Receive Date: 20050629
  Receipt Date: 20040201
  Transmission Date: 20051028
  Serious: No
  Sender: FDA-Public Use
  Company Number: 7757

PATIENT
  Age: 64 Year
  Sex: Female

DRUGS (2)
  1. ACYCLOVIR [Suspect]
     Indication: HERPES SIMPLEX
  2. THEOPHYLLINE [Suspect]
     Indication: ASTHMA
     Dosage: 200 MG BID/200 MG TID

REACTIONS (5)
  - DEPRESSION [None]
  - DRUG CLEARANCE DECREASED [None]
  - DRUG INTERACTION [None]
  - IRRITABILITY [None]
  - PANIC DISORDER [None]
